FAERS Safety Report 17237779 (Version 3)
Quarter: 2020Q1

REPORT INFORMATION
  Report Type: Spontaneous
  Country: FR (occurrence: FR)
  Receive Date: 20200106
  Receipt Date: 20200211
  Transmission Date: 20200409
  Serious: Yes (Death, Life-Threatening)
  Sender: FDA-Public Use
  Company Number: FR-MYLANLABS-2020M1001509

PATIENT
  Age: 54 Year
  Sex: Female
  Weight: 46 kg

DRUGS (5)
  1. DESLORATADINE. [Suspect]
     Active Substance: DESLORATADINE
     Indication: PRODUCT USED FOR UNKNOWN INDICATION
     Dosage: 13 COMPRIMES DE 5MG EN UNE SEULE PRISE
     Route: 048
     Dates: start: 20190809
  2. GABAPENTIN. [Suspect]
     Active Substance: GABAPENTIN
     Indication: PRODUCT USED FOR UNKNOWN INDICATION
     Dosage: 20 GELULES DE 300MG EN UNE SEULE PRISE
     Route: 048
     Dates: start: 20190809
  3. MIANSERIN [Suspect]
     Active Substance: MIANSERIN
     Indication: PRODUCT USED FOR UNKNOWN INDICATION
     Dosage: 3 COMPRIMES DE 60 MG EN UNE SEULE PRISE
     Route: 048
     Dates: start: 20190809
  4. DIFFU K [Suspect]
     Active Substance: POTASSIUM CHLORIDE
     Indication: PRODUCT USED FOR UNKNOWN INDICATION
     Dosage: 13 GELULES DE 600MG EN UNE SEULE PRISE
     Route: 048
     Dates: start: 20190809
  5. ZOLPIDEM [Suspect]
     Active Substance: ZOLPIDEM TARTRATE
     Indication: PRODUCT USED FOR UNKNOWN INDICATION
     Dosage: 14 COMPRIMES DE 10 MG EN UNE SEULE PRISE
     Route: 048
     Dates: start: 20190809

REACTIONS (6)
  - Disseminated intravascular coagulation [Fatal]
  - Arrhythmia [Fatal]
  - Hyperkalaemia [Fatal]
  - Respiratory disorder [Fatal]
  - Toxicity to various agents [Fatal]
  - Cardio-respiratory arrest [Fatal]

NARRATIVE: CASE EVENT DATE: 20190809
